FAERS Safety Report 8780454 (Version 1)
Quarter: 2012Q4

REPORT INFORMATION
  Report Type: Spontaneous
  Country: US (occurrence: None)
  Receive Date: 20120906
  Receipt Date: 20120906
  Transmission Date: 20130627
  Serious: No
  Sender: FDA-Public Use
  Company Number: None

PATIENT
  Age: 11 Year
  Sex: Female
  Weight: 15.9 kg

DRUGS (2)
  1. DITROPAN XL [Suspect]
     Dates: start: 20120829, end: 20120831
  2. DITROPAN XL [Suspect]
     Dates: start: 20120829, end: 20120831

REACTIONS (2)
  - Dysphagia [None]
  - Swollen tongue [None]
